FAERS Safety Report 25116925 (Version 1)
Quarter: 2025Q1

REPORT INFORMATION
  Report Type: Spontaneous
  Country: GB (occurrence: GB)
  Receive Date: 20250325
  Receipt Date: 20250325
  Transmission Date: 20250408
  Serious: Yes (Hospitalization)
  Sender: GENMAB
  Company Number: GB-ABBVIE-6191818

PATIENT
  Age: 70 Year

DRUGS (1)
  1. EPCORITAMAB [Suspect]
     Active Substance: EPCORITAMAB
     Indication: B-cell lymphoma
     Route: 058
     Dates: start: 202009

REACTIONS (4)
  - Plasma cell myeloma [Unknown]
  - Cellulitis [Unknown]
  - Cough [Unknown]
  - Pyrexia [Unknown]
